FAERS Safety Report 9452575 (Version 1)
Quarter: 2013Q3

REPORT INFORMATION
  Report Type: Report from Study
  Country: CA (occurrence: CA)
  Receive Date: 20130812
  Receipt Date: 20130812
  Transmission Date: 20140515
  Serious: Yes (Death, Hospitalization)
  Sender: FDA-Public Use
  Company Number: CA-JNJFOC-20130803611

PATIENT
  Sex: Female
  Weight: 46.8 kg

DRUGS (11)
  1. STELARA [Suspect]
     Indication: CROHN^S DISEASE
     Route: 065
     Dates: start: 20130703, end: 20130703
  2. STELARA [Suspect]
     Indication: CROHN^S DISEASE
     Route: 065
     Dates: start: 20130626, end: 20130626
  3. STELARA [Suspect]
     Indication: CROHN^S DISEASE
     Route: 065
     Dates: start: 20130710, end: 20130710
  4. CALCIUM CARBONATE [Concomitant]
     Route: 048
  5. VITAMIN D [Concomitant]
     Route: 048
  6. EMTEC 30 [Concomitant]
     Route: 048
  7. DOMPERIDONE [Concomitant]
     Route: 048
  8. METOCLOPRAMIDE [Concomitant]
     Route: 048
  9. ELTROXIN [Concomitant]
     Route: 048
  10. ZOLMITRIPTAN [Concomitant]
     Route: 048
  11. PREDNISONE [Concomitant]
     Route: 048

REACTIONS (1)
  - Cerebrovascular accident [Fatal]
